FAERS Safety Report 22178940 (Version 1)
Quarter: 2023Q2

REPORT INFORMATION
  Report Type: Spontaneous
  Country: BE (occurrence: BE)
  Receive Date: 20230406
  Receipt Date: 20230406
  Transmission Date: 20230722
  Serious: Yes (Other)
  Sender: FDA-Public Use
  Company Number: BE-AMGEN-BELSP2023055201

PATIENT
  Age: 72 Year
  Sex: Male

DRUGS (16)
  1. PEGFILGRASTIM [Suspect]
     Active Substance: PEGFILGRASTIM
     Indication: Product used for unknown indication
     Dosage: UNK
     Route: 065
  2. PANITUMUMAB [Suspect]
     Active Substance: PANITUMUMAB
     Indication: Colon cancer
     Dosage: UNK
     Route: 065
  3. BEVACIZUMAB [Suspect]
     Active Substance: BEVACIZUMAB
     Indication: Colon cancer metastatic
     Dosage: UNK
     Route: 065
  4. FLUOROURACIL [Concomitant]
     Active Substance: FLUOROURACIL
     Dosage: UNK
     Dates: start: 201905
  5. CAPECITABINE [Concomitant]
     Active Substance: CAPECITABINE
     Dosage: UNK
     Dates: start: 202001
  6. IRINOTECAN [Concomitant]
     Active Substance: IRINOTECAN
  7. ACETAMINOPHEN [Concomitant]
     Active Substance: ACETAMINOPHEN
  8. OXALIPLATIN [Concomitant]
     Active Substance: OXALIPLATIN
  9. DEXCHLORPHENIRAMINE MALEATE [Concomitant]
     Active Substance: DEXCHLORPHENIRAMINE MALEATE
     Dosage: 5 MILLIGRAM
  10. METHYLPREDNISOLONE [Concomitant]
     Active Substance: METHYLPREDNISOLONE
     Dosage: 32 MILLIGRAM
  11. DEXAMETHASONE [Concomitant]
     Active Substance: DEXAMETHASONE
  12. PALONOSETRON [Concomitant]
     Active Substance: PALONOSETRON
  13. LEUCOVORIN SODIUM [Concomitant]
     Active Substance: LEUCOVORIN SODIUM
     Dosage: 100 MILLIGRAM PER MILLILITRE (AMPOULE)
  14. HISTAMINE DIHYDROCHLORIDE [Concomitant]
     Active Substance: HISTAMINE DIHYDROCHLORIDE
     Dosage: 10 MILLIGRAM PER MILLILITRE
  15. FOLVITE [Concomitant]
     Active Substance: FOLIC ACID
     Dosage: 4 MILLIGRAM
  16. LEUCOVORIN [Concomitant]
     Active Substance: LEUCOVORIN
     Dosage: UNK

REACTIONS (3)
  - Colon cancer metastatic [Unknown]
  - Diarrhoea [Unknown]
  - Back pain [Unknown]
